FAERS Safety Report 5086202-2 (Version None)
Quarter: 2006Q3

REPORT INFORMATION
  Report Type: 
  Country: None (occurrence: None)
  Receive Date: 20060818
  Receipt Date: 20060808
  Transmission Date: 20061208
  Serious: Yes (Death)
  Sender: FDA-Public Use
  Company Number: 2006JP002660

PATIENT
  Age: 73 Year
  Sex: Male
  Weight: 69 kg

DRUGS (10)
  1. FUNGUARD [Suspect]
     Indication: FUNGAL INFECTION
     Dosage: 150 MG, UNKNOWN/D, IV DRIP
     Route: 041
     Dates: start: 20050720, end: 20050726
  2. SULPERAZON            (CEFOPERAZONE) [Concomitant]
  3. MEROPEN             (MEROPENEM) [Concomitant]
  4. PAZUCROSS            (PAZUFLOXACIN) INJECTION [Concomitant]
  5. MINOMYCIN             (MINOCYLINE HYDROCHLORIDE) INJECTION [Concomitant]
  6. VANCOMYCIN              (VANCOMYCI HYDROCHLORIDE0 INJECTION [Concomitant]
  7. GAMMAGARD                    (IMMUNOGLOBULIN HUMAN NORMAL) INJECTION [Concomitant]
  8. NEUTROGIN                           (LENOGRASTIM) INJECTION [Concomitant]
  9. SOLU-MEDROL [Concomitant]
  10. FOY     (GABEXATE MESILATE) [Concomitant]

REACTIONS (3)
  - ACUTE RESPIRATORY DISTRESS SYNDROME [None]
  - CONDITION AGGRAVATED [None]
  - INFECTION [None]
